FAERS Safety Report 22130435 (Version 1)
Quarter: 2023Q1

REPORT INFORMATION
  Report Type: Spontaneous
  Country: CA (occurrence: CA)
  Receive Date: 20230323
  Receipt Date: 20230323
  Transmission Date: 20230418
  Serious: Yes (Death)
  Sender: FDA-Public Use
  Company Number: CA-PFIZER INC-2021677285

PATIENT
  Age: 53 Year
  Sex: Male

DRUGS (13)
  1. LORBRENA [Suspect]
     Active Substance: LORLATINIB
     Dosage: 100 MG, DAILY
     Route: 048
     Dates: start: 20201215
  2. LORBRENA [Suspect]
     Active Substance: LORLATINIB
     Dosage: UNK
     Dates: start: 20210306
  3. LORBRENA [Suspect]
     Active Substance: LORLATINIB
     Dosage: 75 MG, 1X/DAY
     Route: 048
  4. LORBRENA [Suspect]
     Active Substance: LORLATINIB
     Dosage: 100 MG, 1X/DAY
  5. AMLODIPINE [Concomitant]
     Active Substance: AMLODIPINE BESYLATE
     Dosage: UNK
  6. GABAPENTIN [Concomitant]
     Active Substance: GABAPENTIN
     Dosage: UNK
  7. HYDROMORPHONE [Concomitant]
     Active Substance: HYDROMORPHONE
     Dosage: UNK
  8. JARDIANCE [Concomitant]
     Active Substance: EMPAGLIFLOZIN
     Dosage: UNK
  9. METFORMIN [Concomitant]
     Active Substance: METFORMIN HYDROCHLORIDE
     Dosage: UNK
  10. PANTOPRAZOLE [Concomitant]
     Active Substance: PANTOPRAZOLE
     Dosage: UNK
  11. PERINDOPRIL [Concomitant]
     Active Substance: PERINDOPRIL
     Dosage: UNK
  12. REPAGLINIDE [Concomitant]
     Active Substance: REPAGLINIDE
     Dosage: UNK
  13. ROSUVASTATIN [Concomitant]
     Active Substance: ROSUVASTATIN
     Dosage: UNK

REACTIONS (6)
  - Death [Fatal]
  - Pain [Recovered/Resolved]
  - Anxiety [Recovered/Resolved]
  - Depression [Recovered/Resolved]
  - General physical health deterioration [Recovering/Resolving]
  - Loss of personal independence in daily activities [Recovered/Resolved]

NARRATIVE: CASE EVENT DATE: 20230115
